FAERS Safety Report 12177242 (Version 1)
Quarter: 2016Q1

REPORT INFORMATION
  Report Type: Spontaneous
  Country: US (occurrence: US)
  Receive Date: 20160314
  Receipt Date: 20160314
  Transmission Date: 20160526
  Serious: Yes (Other)
  Sender: FDA-Public Use
  Company Number: US-BAYER-2015-374663

PATIENT
  Age: 23 Year
  Sex: Female

DRUGS (2)
  1. MIRENA [Suspect]
     Active Substance: LEVONORGESTREL
     Indication: CONTRACEPTION
     Dosage: 20 MCG/24HR, CONT
     Route: 015
     Dates: start: 20150327, end: 20150804
  2. MIRENA [Suspect]
     Active Substance: LEVONORGESTREL
     Indication: GENITAL HAEMORRHAGE

REACTIONS (14)
  - Amnesia [None]
  - Embedded device [None]
  - Headache [None]
  - Abdominal pain upper [None]
  - Procedural haemorrhage [None]
  - Depression [None]
  - Device difficult to use [Not Recovered/Not Resolved]
  - Alopecia [None]
  - Device difficult to use [Not Recovered/Not Resolved]
  - Vaginal haemorrhage [None]
  - Adverse event [None]
  - Genital haemorrhage [None]
  - Weight increased [None]
  - Gastrointestinal pain [None]

NARRATIVE: CASE EVENT DATE: 2015
